FAERS Safety Report 16950203 (Version 2)
Quarter: 2020Q2

REPORT INFORMATION
  Report Type: Spontaneous
  Country: US (occurrence: US)
  Receive Date: 20191023
  Receipt Date: 20200401
  Transmission Date: 20200713
  Serious: No
  Sender: FDA-Public Use
  Company Number: US-PFIZER INC-2019452555

PATIENT
  Age: 15 Year
  Sex: Female
  Weight: 39.92 kg

DRUGS (1)
  1. GENOTROPIN [Suspect]
     Active Substance: SOMATROPIN
     Indication: GROWTH HORMONE DEFICIENCY
     Dosage: 2 MG, UNK(EVERY NIGHT 6 DAYS A WEEK )
     Dates: start: 201708

REACTIONS (3)
  - Product dose omission [Unknown]
  - Device power source issue [Unknown]
  - Therapeutic product effect delayed [Unknown]

NARRATIVE: CASE EVENT DATE: 201906
